FAERS Safety Report 5627918-6 (Version None)
Quarter: 2008Q1

REPORT INFORMATION
  Report Type: 
  Country: None (occurrence: None)
  Receive Date: 20080215
  Receipt Date: 20080206
  Transmission Date: 20080703
  Serious: Yes (Death, Hospitalization, Disabling)
  Sender: FDA-Public Use
  Company Number: GB-ROCHE-545254

PATIENT
  Age: 84 Year
  Sex: Female
  Weight: 48 kg

DRUGS (9)
  1. BONIVA [Suspect]
     Indication: OSTEOPOROSIS
     Route: 042
     Dates: start: 20080122, end: 20080128
  2. GTN-S [Concomitant]
     Route: 060
  3. ASPIRIN [Concomitant]
     Route: 048
  4. CALCIUM SUPPLEMENT [Concomitant]
     Route: 048
  5. CREON [Concomitant]
  6. FUROSEMIDE [Concomitant]
  7. ISMO [Concomitant]
  8. CO-CODAMOL [Concomitant]
  9. CLOPIDOGREL [Concomitant]

REACTIONS (1)
  - PNEUMONIA [None]
